FAERS Safety Report 15570151 (Version 2)
Quarter: 2018Q4

REPORT INFORMATION
  Report Type: Spontaneous
  Country: IT (occurrence: IT)
  Receive Date: 20181031
  Receipt Date: 20181126
  Transmission Date: 20190205
  Serious: Yes (Hospitalization)
  Sender: FDA-Public Use
  Company Number: IT-ORION CORPORATION ORION PHARMA-18_00004736

PATIENT
  Age: 71 Year
  Sex: Male
  Weight: 90 kg

DRUGS (8)
  1. DIAZEPAM. [Concomitant]
     Active Substance: DIAZEPAM
     Indication: ANXIETY
     Route: 048
  2. STALEVO [Suspect]
     Active Substance: CARBIDOPA\ENTACAPONE\LEVODOPA
     Indication: TOXICITY TO VARIOUS AGENTS
     Dosage: 60 TABLETS
     Route: 048
     Dates: start: 20181013
  3. OMEPRAZOLE. [Concomitant]
     Active Substance: OMEPRAZOLE
     Route: 048
  4. TRITTICO [Concomitant]
     Active Substance: TRAZODONE HYDROCHLORIDE
     Indication: DEPRESSION
     Dosage: STRENGTH: 75 MG
     Route: 048
  5. SERTRALINE [Concomitant]
     Active Substance: SERTRALINE HYDROCHLORIDE
     Indication: DEPRESSION
     Route: 048
  6. PROPAFENONE. [Concomitant]
     Active Substance: PROPAFENONE
     Indication: ARRHYTHMIA
     Route: 048
  7. TAMSULOSIN HYDROCHLORIDE. [Concomitant]
     Active Substance: TAMSULOSIN HYDROCHLORIDE
     Indication: BENIGN PROSTATIC HYPERPLASIA
     Route: 048
  8. SINEMET [Concomitant]
     Active Substance: CARBIDOPA\LEVODOPA
     Indication: PARKINSON^S DISEASE
     Dosage: 100 MG + 25 MG
     Route: 048

REACTIONS (4)
  - Toxicity to various agents [Recovered/Resolved]
  - Pneumonitis [Recovered/Resolved]
  - Intentional overdose [Recovered/Resolved]
  - Alcohol poisoning [Recovered/Resolved]

NARRATIVE: CASE EVENT DATE: 20181013
